FAERS Safety Report 16930243 (Version 1)
Quarter: 2019Q4

REPORT INFORMATION
  Report Type: Spontaneous
  Country: DK (occurrence: DK)
  Receive Date: 20191017
  Receipt Date: 20191017
  Transmission Date: 20200122
  Serious: Yes (Hospitalization)
  Sender: FDA-Public Use
  Company Number: DK-009507513-1910DNK010163

PATIENT
  Age: 13 Year
  Sex: Female
  Weight: 72 kg

DRUGS (1)
  1. NASONEX [Suspect]
     Active Substance: MOMETASONE FUROATE
     Indication: SEASONAL ALLERGY
     Dosage: STRENGTH: 50 ?G/DOSE. DOSE: TWO (2) SPRAYS IN EACH NOSTRIL TWICE DAILY
     Route: 045
     Dates: start: 2004, end: 2013

REACTIONS (6)
  - Skin burning sensation [Recovered/Resolved]
  - Skin swelling [Recovered/Resolved]
  - Urticaria [Recovered/Resolved]
  - Hypersensitivity [Unknown]
  - Dyspnoea [Recovered/Resolved]
  - Dysphagia [Recovered/Resolved]

NARRATIVE: CASE EVENT DATE: 2010
